FAERS Safety Report 8671717 (Version 4)
Quarter: 2013Q2

REPORT INFORMATION
  Report Type: Spontaneous
  Country: US (occurrence: US)
  Receive Date: 20120718
  Receipt Date: 20130612
  Transmission Date: 20140414
  Serious: Yes (Hospitalization, Disabling, Other)
  Sender: FDA-Public Use
  Company Number: US-009507513-1207USA003731

PATIENT
  Sex: Female
  Weight: 70.75 kg

DRUGS (10)
  1. FOSAMAX [Suspect]
     Indication: OSTEOPOROSIS
     Dosage: 10 MG, UNK
     Route: 048
     Dates: start: 199512, end: 200112
  2. FOSAMAX [Suspect]
     Dosage: 10 MG, UNK
     Route: 048
     Dates: start: 200407, end: 200801
  3. FOSAMAX [Suspect]
     Dosage: 10 MG, UNK
     Route: 048
     Dates: start: 200905, end: 201005
  4. FOSAMAX [Suspect]
     Dosage: 70 MG, UNK
     Route: 048
     Dates: start: 200201, end: 200406
  5. ALENDRONATE SODIUM [Suspect]
     Indication: OSTEOPOROSIS
     Dosage: 10 MG, UNK
     Route: 048
     Dates: start: 200802, end: 200805
  6. ALENDRONATE SODIUM [Suspect]
     Dosage: 70 MG, UNK
     Route: 048
     Dates: start: 200806, end: 200904
  7. CALCIUM (UNSPECIFIED) [Concomitant]
     Dosage: UNK
     Dates: start: 1998
  8. VITAMINS (UNSPECIFIED) [Concomitant]
     Dosage: UNK
  9. LEVOTHYROXINE SODIUM [Concomitant]
     Indication: HYPOTHYROIDISM
     Dosage: 112 MICROGRAM, UNK
     Dates: start: 201102
  10. LEVOTHROID [Concomitant]
     Indication: HYPOTHYROIDISM
     Dosage: 112 MICROGRAM, QD

REACTIONS (12)
  - Surgery [Unknown]
  - Femur fracture [Unknown]
  - Caesarean section [Unknown]
  - Osteoporosis [Unknown]
  - Stress fracture [Unknown]
  - Low turnover osteopathy [Unknown]
  - Femur fracture [Unknown]
  - Vitamin D deficiency [Unknown]
  - Hypercholesterolaemia [Unknown]
  - Stress fracture [Unknown]
  - Tonsillectomy [Unknown]
  - Gallbladder operation [Unknown]
